FAERS Safety Report 23238800 (Version 1)
Quarter: 2023Q4

REPORT INFORMATION
  Report Type: Spontaneous
  Country: US (occurrence: US)
  Receive Date: 20231129
  Receipt Date: 20231129
  Transmission Date: 20240110
  Serious: No
  Sender: FDA-Public Use
  Company Number: US-AMGEN-USASP2023211979

PATIENT
  Age: 59 Year
  Sex: Male

DRUGS (2)
  1. TAVNEOS [Suspect]
     Active Substance: AVACOPAN
     Indication: Granulomatosis with polyangiitis
     Dosage: 30 MILLIGRAM, BID
     Route: 065
  2. TAVNEOS [Suspect]
     Active Substance: AVACOPAN
     Dosage: 10 MILLIGRAM, BID (REDUCED HIS DOSE TO 10 MG . 1 CAP TWICE DAILY)
     Route: 065

REACTIONS (2)
  - Decreased appetite [Unknown]
  - Nausea [Unknown]
